FAERS Safety Report 7535646-5 (Version None)
Quarter: 2011Q2

REPORT INFORMATION
  Report Type: 
  Country: None (occurrence: None)
  Receive Date: 20110602
  Receipt Date: 20110525
  Transmission Date: 20111010
  Serious: Yes (Disabling, Other)
  Sender: FDA-Public Use
  Company Number: WAES 1105USA03728

PATIENT
  Sex: Male

DRUGS (11)
  1. TOPROL-XL [Suspect]
     Indication: CARDIAC DISORDER
     Dosage: 25 MG
  2. ASPIRIN [Suspect]
     Indication: CARDIAC DISORDER
     Dosage: 81 MG
  3. BROVANA [Suspect]
     Indication: CHRONIC OBSTRUCTIVE PULMONARY DISEASE
  4. LIPITOR [Suspect]
     Indication: BLOOD CHOLESTEROL INCREASED
     Dosage: 40MG/1X
  5. PREDNISONE [Suspect]
     Indication: EMPHYSEMA
     Dosage: 40 MG
  6. ZETIA [Suspect]
     Indication: CARDIAC DISORDER
     Dosage: PO
  7. SPIRIVA [Suspect]
     Indication: CHRONIC OBSTRUCTIVE PULMONARY DISEASE
     Dosage: 18 MICROGM/1X/INH
     Route: 055
  8. ALBUTEROL SULATE [Suspect]
     Indication: CHRONIC OBSTRUCTIVE PULMONARY DISEASE
  9. PULMICORT [Suspect]
     Indication: CHRONIC OBSTRUCTIVE PULMONARY DISEASE
  10. PROZAC [Suspect]
     Dosage: 20 MG
  11. KLONOPIN [Suspect]
     Indication: PRODUCT USED FOR UNKNOWN INDICATION
     Dosage: 5 MG

REACTIONS (6)
  - PARAESTHESIA [None]
  - MUSCULAR WEAKNESS [None]
  - GAIT DISTURBANCE [None]
  - DIABETES MELLITUS [None]
  - MUSCLE FATIGUE [None]
  - EXERCISE TOLERANCE DECREASED [None]
